FAERS Safety Report 6056973-7 (Version None)
Quarter: 2009Q1

REPORT INFORMATION
  Report Type: 
  Country: None (occurrence: None)
  Receive Date: 20090129
  Receipt Date: 20090121
  Transmission Date: 20090719
  Serious: Yes (Other)
  Sender: FDA-Public Use
  Company Number: US-AVENTIS-200910566US

PATIENT
  Sex: Male
  Weight: 97.3 kg

DRUGS (7)
  1. APIDRA [Suspect]
     Dosage: DOSE: 180 VIA PUMP DAILY, AND PER SLIDING SCALE BASED ON BLOOD GLUCOSE LEVELS
     Route: 058
  2. SOTALOL [Concomitant]
  3. FLOMAX [Concomitant]
  4. ENABLEX [Concomitant]
  5. ALTACE [Concomitant]
     Dosage: DOSE: UNK
  6. HYDROCHLORZIDE [Concomitant]
     Dosage: DOSE: UNK
  7. ASPIRIN [Concomitant]
     Dosage: DOSE: 80 MG 1/2 TABLET

REACTIONS (3)
  - HYPERGLYCAEMIA [None]
  - URINE KETONE BODY PRESENT [None]
  - VOMITING [None]
